FAERS Safety Report 25613611 (Version 1)
Quarter: 2025Q3

REPORT INFORMATION
  Report Type: Spontaneous
  Country: KR (occurrence: KR)
  Receive Date: 20250728
  Receipt Date: 20250728
  Transmission Date: 20251020
  Serious: Yes (Other)
  Sender: GLAXOSMITHKLINE
  Company Number: KR-GSK-KR2025APC089831

PATIENT
  Sex: Female

DRUGS (1)
  1. JEMPERLI [Suspect]
     Active Substance: DOSTARLIMAB-GXLY
     Indication: Endometrial cancer stage IV

REACTIONS (7)
  - Thrombosis [Unknown]
  - Skin fissures [Unknown]
  - Paraesthesia [Unknown]
  - Swelling [Unknown]
  - Pain [Unknown]
  - Skin discolouration [Unknown]
  - Asthenia [Unknown]
